FAERS Safety Report 5733315-5 (Version None)
Quarter: 2008Q2

REPORT INFORMATION
  Report Type: 
  Country: None (occurrence: None)
  Receive Date: 20080509
  Receipt Date: 20080507
  Transmission Date: 20081010
  Serious: Yes (Hospitalization)
  Sender: FDA-Public Use
  Company Number: JP-BRISTOL-MYERS SQUIBB COMPANY-14182018

PATIENT
  Sex: Female

DRUGS (2)
  1. TAXOL [Suspect]
     Indication: BREAST CANCER
     Dosage: START DATE WAS 02-FEB-2008
     Dates: start: 20080418, end: 20080418
  2. AVASTIN [Suspect]
     Indication: BREAST CANCER
     Dosage: START DATE WAS 02-FEB-2008
     Dates: start: 20080418, end: 20080418

REACTIONS (1)
  - UPPER GASTROINTESTINAL HAEMORRHAGE [None]
